FAERS Safety Report 18661727 (Version 1)
Quarter: 2020Q4

REPORT INFORMATION
  Report Type: Report from Study
  Country: None (occurrence: US)
  Receive Date: 20201224
  Receipt Date: 20201224
  Transmission Date: 20210114
  Serious: No
  Sender: FDA-Public Use
  Company Number: US-BIOVITRUM-2020US7311

PATIENT
  Sex: Female

DRUGS (21)
  1. KINERET [Suspect]
     Active Substance: ANAKINRA
     Indication: RHEUMATOID ARTHRITIS
     Route: 058
     Dates: start: 20201201
  2. LYRICA [Concomitant]
     Active Substance: PREGABALIN
  3. ACYCLOVIR. [Concomitant]
     Active Substance: ACYCLOVIR
  4. PROPRANOLOL [Concomitant]
     Active Substance: PROPRANOLOL HYDROCHLORIDE
  5. VITAMIN D2 [Concomitant]
     Active Substance: ERGOCALCIFEROL
  6. ZYRTEC [Concomitant]
     Active Substance: CETIRIZINE HYDROCHLORIDE
  7. MAGNESIUM OXIDE. [Concomitant]
     Active Substance: MAGNESIUM OXIDE
  8. TEMAZEPAM. [Concomitant]
     Active Substance: TEMAZEPAM
  9. PRADAXA [Concomitant]
     Active Substance: DABIGATRAN ETEXILATE MESYLATE
  10. LUNESTA [Concomitant]
     Active Substance: ESZOPICLONE
  11. FLONASE [Concomitant]
     Active Substance: FLUTICASONE PROPIONATE
  12. VITAMIN B12 [Concomitant]
     Active Substance: CYANOCOBALAMIN
  13. SULFASALAZINE. [Concomitant]
     Active Substance: SULFASALAZINE
  14. XOPENEX [Concomitant]
     Active Substance: LEVALBUTEROL HYDROCHLORIDE
     Dosage: AS NEEDED
  15. LASIX [Concomitant]
     Active Substance: FUROSEMIDE
  16. METAXALONE. [Concomitant]
     Active Substance: METAXALONE
  17. OXYCODONE ER [Concomitant]
     Active Substance: OXYCODONE
  18. AMIODARONE [Concomitant]
     Active Substance: AMIODARONE
  19. LISINOPRIL. [Concomitant]
     Active Substance: LISINOPRIL
  20. MONTELUKAST [Concomitant]
     Active Substance: MONTELUKAST SODIUM
  21. KCL [Concomitant]
     Active Substance: POTASSIUM CHLORIDE

REACTIONS (6)
  - Dyspnoea [Unknown]
  - Nasal congestion [Unknown]
  - Injection site pain [Unknown]
  - Wheezing [Unknown]
  - Hypersensitivity [Unknown]
  - Throat tightness [Unknown]
